FAERS Safety Report 7501695-6 (Version None)
Quarter: 2011Q2

REPORT INFORMATION
  Report Type: 
  Country: None (occurrence: None)
  Receive Date: 20110525
  Receipt Date: 20110519
  Transmission Date: 20111010
  Serious: Yes (Death, Hospitalization, Other)
  Sender: FDA-Public Use
  Company Number: MX-BRISTOL-MYERS SQUIBB COMPANY-15612534

PATIENT
  Age: 60 Year
  Sex: Female

DRUGS (4)
  1. PREDNISONE [Concomitant]
     Dates: start: 19960101
  2. ABATACEPT [Suspect]
     Indication: RHEUMATOID ARTHRITIS
     Route: 058
     Dates: start: 20080811, end: 20110228
  3. METHOTREXATE [Suspect]
     Dates: start: 20080108, end: 20110306
  4. RISEDRONATE SODIUM [Concomitant]
     Dates: start: 20040101

REACTIONS (1)
  - METASTATIC NEOPLASM [None]
